FAERS Safety Report 10145748 (Version 1)
Quarter: 2014Q2

REPORT INFORMATION
  Report Type: Spontaneous
  Country: US (occurrence: None)
  Receive Date: 20140430
  Receipt Date: 20140430
  Transmission Date: 20141212
  Serious: Yes (Hospitalization)
  Sender: FDA-Public Use
  Company Number: None

PATIENT
  Age: 65 Year
  Sex: Male

DRUGS (1)
  1. IVIG [Suspect]
     Indication: DEMYELINATION
     Route: 042
     Dates: start: 20130719, end: 20130719

REACTIONS (3)
  - Swollen tongue [None]
  - Rash [None]
  - Urticaria [None]
